FAERS Safety Report 5454758-3 (Version None)
Quarter: 2007Q3

REPORT INFORMATION
  Report Type: 
  Country: None (occurrence: None)
  Receive Date: 20070917
  Receipt Date: 20060818
  Transmission Date: 20080115
  Serious: No
  Sender: FDA-Public Use
  Company Number: US-ASTRAZENECA-2006UW16484

PATIENT
  Age: 65 Year
  Sex: Female
  Weight: 103.9 kg

DRUGS (8)
  1. SEROQUEL [Suspect]
     Indication: BIPOLAR DISORDER
     Route: 048
  2. EFFEXOR [Concomitant]
  3. NEURONTIN [Concomitant]
  4. SYNTHROID [Concomitant]
  5. ACIPHEX [Concomitant]
  6. AVAPRO [Concomitant]
  7. HYDROCHLOROTHIAZIDE [Concomitant]
  8. ATIVAN [Concomitant]

REACTIONS (3)
  - FEELING ABNORMAL [None]
  - HEADACHE [None]
  - SOMNOLENCE [None]
